FAERS Safety Report 6377777-1 (Version None)
Quarter: 2009Q3

REPORT INFORMATION
  Report Type: 
  Country: None (occurrence: None)
  Receive Date: 20090925
  Receipt Date: 20090915
  Transmission Date: 20100115
  Serious: No
  Sender: FDA-Public Use
  Company Number: JP-ELI_LILLY_AND_COMPANY-JP200909001398

PATIENT
  Age: 8 Year
  Sex: Male

DRUGS (3)
  1. STRATTERA [Suspect]
     Indication: ATTENTION DEFICIT/HYPERACTIVITY DISORDER
     Dosage: 10 MG, DAILY (1/D)
     Route: 048
     Dates: start: 20090817, end: 20090801
  2. STRATTERA [Suspect]
     Dosage: 10 MG, 2/D
     Route: 048
     Dates: start: 20090801, end: 20090801
  3. STRATTERA [Suspect]
     Dosage: 20 MG, EACH MORNING
     Route: 048
     Dates: start: 20090801

REACTIONS (2)
  - CRYING [None]
  - SCREAMING [None]
